FAERS Safety Report 5237647-9 (Version None)
Quarter: 2007Q1

REPORT INFORMATION
  Report Type: 
  Country: None (occurrence: None)
  Receive Date: 20070214
  Receipt Date: 20070212
  Transmission Date: 20070707
  Serious: Yes (Hospitalization)
  Sender: FDA-Public Use
  Company Number: US-BAYER-200611095BWH

PATIENT
  Age: 70 Year
  Sex: Male

DRUGS (9)
  1. NEXAVAR [Suspect]
     Indication: RENAL CELL CARCINOMA STAGE UNSPECIFIED
     Dosage: TOTAL DAILY DOSE: 800 MG  UNIT DOSE: 200 MG
     Route: 048
     Dates: start: 20060210, end: 20060211
  2. NEXAVAR [Suspect]
     Dosage: TOTAL DAILY DOSE: 800 MG  UNIT DOSE: 200 MG
     Route: 048
     Dates: start: 20060218
  3. FLOMAX [Concomitant]
  4. AVANDIA [Concomitant]
  5. ZOLOFT [Concomitant]
  6. OXAZEPAM [Concomitant]
  7. MULTI-VITAMIN [Concomitant]
  8. PROTONIX [Concomitant]
  9. VYTORIN [Concomitant]

REACTIONS (7)
  - ABDOMINAL PAIN [None]
  - ANOREXIA [None]
  - ASTHENIA [None]
  - CHOLELITHIASIS [None]
  - ERUCTATION [None]
  - RETCHING [None]
  - VOMITING [None]
